FAERS Safety Report 10102203 (Version 2)
Quarter: 2014Q2

REPORT INFORMATION
  Report Type: Spontaneous
  Country: PT (occurrence: PT)
  Receive Date: 20140424
  Receipt Date: 20140424
  Transmission Date: 20141212
  Serious: Yes (Other)
  Sender: FDA-Public Use
  Company Number: PT-ACTAVIS-2013-17960

PATIENT
  Age: 47 Year
  Sex: Female
  Weight: 64 kg

DRUGS (4)
  1. LETROZOL ACTAVIS [Suspect]
     Indication: BREAST CANCER
     Dosage: 2.5 MG, DAILY
     Route: 048
     Dates: start: 20130516, end: 20131119
  2. BETAHISTINE ACTAVIS [Concomitant]
     Indication: PRODUCT USED FOR UNKNOWN INDICATION
     Dosage: 48 MG, DAILY
     Route: 048
     Dates: start: 2010
  3. SPASMOPLEX [Concomitant]
     Indication: PRODUCT USED FOR UNKNOWN INDICATION
     Dosage: 20 MG, DAILY
     Route: 048
     Dates: start: 2007
  4. OLMETEC [Concomitant]
     Indication: HYPERTENSION
     Dosage: 20 MG, DAILY
     Route: 048
     Dates: start: 1998

REACTIONS (5)
  - Ecchymosis [Recovered/Resolved]
  - Weight decreased [Recovered/Resolved]
  - Decreased appetite [Recovered/Resolved]
  - Alopecia [Recovering/Resolving]
  - Headache [Not Recovered/Not Resolved]
